FAERS Safety Report 21042898 (Version 4)
Quarter: 2022Q4

REPORT INFORMATION
  Report Type: Report from Study
  Country: ES (occurrence: None)
  Receive Date: 20220705
  Receipt Date: 20221226
  Transmission Date: 20230112
  Serious: Yes (Hospitalization)
  Sender: FDA-Public Use
  Company Number: ES-ROCHE-3128901

PATIENT
  Age: 57 Year
  Sex: Male
  Weight: 118.4 kg

DRUGS (42)
  1. ATEZOLIZUMAB [Suspect]
     Active Substance: ATEZOLIZUMAB
     Indication: Transitional cell carcinoma
     Dosage: MOST RECENT DOSE: 08JUN/2022, 1200MG
     Route: 041
     Dates: start: 20220518
  2. BISOPROLOL FUMARATE [Concomitant]
     Active Substance: BISOPROLOL FUMARATE
     Indication: Hypertension
     Route: 050
     Dates: start: 202204, end: 20220625
  3. ENALAPRIL [Concomitant]
     Active Substance: ENALAPRIL
     Indication: Hypertension
     Route: 048
     Dates: start: 202203, end: 20220625
  4. ENALAPRIL [Concomitant]
     Active Substance: ENALAPRIL
     Route: 048
     Dates: start: 20220630, end: 20220708
  5. HYDROCHLOROTHIAZIDE [Concomitant]
     Active Substance: HYDROCHLOROTHIAZIDE
     Indication: Hypertension
     Route: 048
     Dates: start: 202203, end: 20220625
  6. HYDROCHLOROTHIAZIDE [Concomitant]
     Active Substance: HYDROCHLOROTHIAZIDE
     Route: 048
     Dates: start: 20220630, end: 20220701
  7. LEVOTHYROXINE SODIUM [Concomitant]
     Active Substance: LEVOTHYROXINE SODIUM
     Indication: Hypothyroidism
     Route: 048
     Dates: start: 2014, end: 20220625
  8. METAMIZOLE [Concomitant]
     Active Substance: METAMIZOLE
     Indication: Pain prophylaxis
     Route: 048
     Dates: end: 20220625
  9. ACETAMINOPHEN [Concomitant]
     Active Substance: ACETAMINOPHEN
     Indication: Pain prophylaxis
     Route: 048
     Dates: end: 20220625
  10. SOLIFENACIN [Concomitant]
     Active Substance: SOLIFENACIN
     Indication: Benign prostatic hyperplasia
     Route: 048
     Dates: start: 202204, end: 20220625
  11. TAMSULOSIN HYDROCHLORIDE [Concomitant]
     Active Substance: TAMSULOSIN HYDROCHLORIDE
     Indication: Benign prostatic hyperplasia
     Route: 048
     Dates: start: 202204, end: 20220625
  12. SODIUM BICARBONATE [Concomitant]
     Active Substance: SODIUM BICARBONATE
     Indication: Diabetic ketoacidosis
     Dosage: 42
     Route: 042
     Dates: start: 20220626, end: 20220626
  13. AMIKACIN [Concomitant]
     Active Substance: AMIKACIN
     Indication: Cystitis
     Route: 042
     Dates: start: 20220626, end: 20220626
  14. AMPICILLIN [Concomitant]
     Active Substance: AMPICILLIN
     Indication: Cystitis
     Route: 042
     Dates: start: 20220626, end: 20220711
  15. AMPICILLIN [Concomitant]
     Active Substance: AMPICILLIN
     Route: 042
     Dates: start: 20220628, end: 20220628
  16. BISOPROLOL [Concomitant]
     Active Substance: BISOPROLOL
     Indication: Hypertension
     Route: 048
     Dates: start: 20220630, end: 20220708
  17. CAPTOPRIL [Concomitant]
     Active Substance: CAPTOPRIL
     Indication: Hypertension
     Route: 048
     Dates: start: 20220629, end: 20220705
  18. CALCIUM CHLORIDE [Concomitant]
     Active Substance: CALCIUM CHLORIDE
     Dosage: 9.13
     Route: 042
     Dates: start: 20220626, end: 20220628
  19. DAPTOMYCIN [Concomitant]
     Active Substance: DAPTOMYCIN
     Indication: Cystitis
     Route: 042
     Dates: start: 20220626, end: 20220626
  20. ENOXAPARIN BIOSIMILAR [Concomitant]
     Route: 058
     Dates: start: 20220627, end: 20220711
  21. FUROSEMIDE [Concomitant]
     Active Substance: FUROSEMIDE
     Indication: Hypertension
     Route: 042
  22. CALCIUM GLUCONATE [Concomitant]
     Active Substance: CALCIUM GLUCONATE
     Dosage: 4.6
     Route: 042
     Dates: start: 20220626, end: 20220626
  23. HYDROCORTISONE [Concomitant]
     Active Substance: HYDROCORTISONE
     Route: 042
     Dates: start: 20220626, end: 20220626
  24. INSULIN GLARGINE [Concomitant]
     Active Substance: INSULIN GLARGINE
     Indication: Hyperglycaemia
     Route: 058
     Dates: start: 20220628, end: 20220711
  25. HUMALOG KWIKPEN [Concomitant]
     Active Substance: INSULIN LISPRO
     Indication: Diabetic ketoacidosis
     Route: 058
     Dates: start: 20220626, end: 20220626
  26. HUMALOG KWIKPEN [Concomitant]
     Active Substance: INSULIN LISPRO
     Route: 058
     Dates: start: 20220629, end: 20220711
  27. HUMULIN N [Concomitant]
     Active Substance: INSULIN HUMAN
     Indication: Diabetic ketoacidosis
     Route: 058
     Dates: start: 20220628, end: 20220628
  28. INSULIN NOS [Concomitant]
     Active Substance: INSULIN NOS
     Indication: Diabetic ketoacidosis
     Route: 042
     Dates: start: 20220626, end: 20220628
  29. INSULIN NOS [Concomitant]
     Active Substance: INSULIN NOS
     Route: 042
     Dates: start: 20220629, end: 20220630
  30. LEVOFLOXACIN [Concomitant]
     Active Substance: LEVOFLOXACIN
     Indication: Cystitis
     Route: 042
     Dates: start: 20220628, end: 20220704
  31. LEVOTHYROXINE [Concomitant]
     Active Substance: LEVOTHYROXINE
     Indication: Hypothyroidism
     Dosage: 275 UG
     Route: 048
     Dates: start: 20220627, end: 20220711
  32. LINEZOLID [Concomitant]
     Active Substance: LINEZOLID
     Indication: Cystitis
     Route: 042
     Dates: start: 20220626, end: 20220628
  33. OSMOTIC LAXATIVES (UNK INGREDIENTS) [Concomitant]
     Dosage: 1 OTHER?13.7 GRAIN
     Route: 048
     Dates: start: 20220626, end: 20220711
  34. MEROPENEM [Concomitant]
     Active Substance: MEROPENEM
     Indication: Cystitis
     Route: 042
     Dates: start: 20220626, end: 20220628
  35. MEROPENEM [Concomitant]
     Active Substance: MEROPENEM
     Route: 042
     Dates: start: 20220626, end: 20220626
  36. NYSTATIN [Concomitant]
     Active Substance: NYSTATIN
     Indication: Cystitis
     Route: 048
     Dates: start: 20220630, end: 20220711
  37. NOREPINEPHRINE [Concomitant]
     Active Substance: NOREPINEPHRINE
     Route: 042
     Dates: start: 20220626, end: 20220627
  38. OMEPRAZOLE [Concomitant]
     Active Substance: OMEPRAZOLE
     Indication: Gastrointestinal disorder prophylaxis
     Route: 042
     Dates: start: 20220626, end: 20220711
  39. HERBALS\SAW PALMETTO [Concomitant]
     Active Substance: HERBALS\SAW PALMETTO
     Route: 048
     Dates: start: 20220630, end: 20220704
  40. ANHYDROUS DEXTROSE [Concomitant]
     Active Substance: ANHYDROUS DEXTROSE
     Indication: Hyperglycaemia
     Route: 042
     Dates: start: 20220626, end: 20220627
  41. TRAZODONE [Concomitant]
     Active Substance: TRAZODONE HYDROCHLORIDE
     Route: 048
     Dates: start: 20220630, end: 20220706
  42. MILK PROTEIN [Concomitant]
     Active Substance: CASEIN
     Route: 050
     Dates: start: 20220705, end: 20220711

REACTIONS (3)
  - Sepsis [Recovered/Resolved]
  - Diabetic ketoacidosis [Recovered/Resolved]
  - Urinary tract infection [Recovered/Resolved]

NARRATIVE: CASE EVENT DATE: 20220520
